FAERS Safety Report 6148239-1 (Version None)
Quarter: 2009Q2

REPORT INFORMATION
  Report Type: 
  Country: None (occurrence: None)
  Receive Date: 20090406
  Receipt Date: 20090324
  Transmission Date: 20091009
  Serious: Yes (Other)
  Sender: FDA-Public Use
  Company Number: 2009AP001094

PATIENT
  Age: 70 Year
  Sex: Female

DRUGS (1)
  1. AMIODARONE HCL [Suspect]
     Dosage: 200 MG; QD; 600 MG; QD

REACTIONS (5)
  - DRUG TOXICITY [None]
  - HYPOXIA [None]
  - INTERSTITIAL LUNG DISEASE [None]
  - PLEURAL EFFUSION [None]
  - PLEURITIC PAIN [None]
